FAERS Safety Report 11540475 (Version 1)
Quarter: 2015Q3

REPORT INFORMATION
  Report Type: Spontaneous
  Country: US (occurrence: US)
  Receive Date: 20150923
  Receipt Date: 20150923
  Transmission Date: 20151125
  Serious: No
  Sender: FDA-Public Use
  Company Number: US-BEH-2014047595

PATIENT
  Age: 48 Year
  Sex: Female
  Weight: 60 kg

DRUGS (15)
  1. METHOTREXATE 250 MG/10 ML VIAL [Concomitant]
  2. PLAQUENIL 200 MG TABLET [Concomitant]
  3. GNP VITAMIN D 2.000 UNIT TAB [Concomitant]
  4. ACETAMINOPHEN. [Concomitant]
     Active Substance: ACETAMINOPHEN
  5. NORMAL SALINE [Concomitant]
     Active Substance: SODIUM CHLORIDE
  6. SODIUM CHLORIDE 0.9% [Concomitant]
     Active Substance: SODIUM CHLORIDE
  7. FOLIC ACID 1 MG TABLET [Concomitant]
  8. CALCIUM CITRATE 250 MG CAPLET [Concomitant]
  9. PRIVIGEN [Suspect]
     Active Substance: HUMAN IMMUNOGLOBULIN G
     Indication: DERMATOMYOSITIS
     Dosage: FREQUENCY: EVERY 4 WEEKS
     Route: 042
     Dates: start: 20141219, end: 20141223
  10. L-M-X [Concomitant]
  11. CEPHALEXIN 500 MG CAPSULE [Concomitant]
  12. PREDNISONE 1 MG TABLET [Concomitant]
  13. DIPHENHYDRAMINE. [Concomitant]
     Active Substance: DIPHENHYDRAMINE
  14. HEPARIN 10 UNITS/ML [Concomitant]
  15. EPI-PEN AUTOINJECTOR [Concomitant]

REACTIONS (2)
  - Unevaluable event [Recovered/Resolved]
  - Headache [Recovered/Resolved]

NARRATIVE: CASE EVENT DATE: 20141222
